FAERS Safety Report 12123771 (Version 1)
Quarter: 2016Q1

REPORT INFORMATION
  Report Type: Spontaneous
  Country: US (occurrence: US)
  Receive Date: 20160227
  Receipt Date: 20160227
  Transmission Date: 20160526
  Serious: No
  Sender: FDA-Public Use
  Company Number: US-AUROBINDO-AUR-APL-2015-02730

PATIENT
  Age: 13 Year
  Sex: Female

DRUGS (1)
  1. LEVETIRACETAM ORAL SOLUTION 100 MG/ML [Suspect]
     Active Substance: LEVETIRACETAM
     Indication: SEIZURE
     Dosage: 7 ML, TWO TIMES A DAY
     Route: 048
     Dates: start: 201212

REACTIONS (2)
  - Product taste abnormal [Not Recovered/Not Resolved]
  - Product odour abnormal [Not Recovered/Not Resolved]

NARRATIVE: CASE EVENT DATE: 201503
